FAERS Safety Report 11931294 (Version 1)
Quarter: 2016Q1

REPORT INFORMATION
  Report Type: Spontaneous
  Country: US (occurrence: US)
  Receive Date: 20160120
  Receipt Date: 20160120
  Transmission Date: 20160526
  Serious: No
  Sender: FDA-Public Use
  Company Number: US-INCYTE CORPORATION-2015IN005116

PATIENT
  Sex: Female

DRUGS (1)
  1. JAKAFI [Suspect]
     Active Substance: RUXOLITINIB
     Dosage: 1 1/2 TABLETS QD
     Route: 048

REACTIONS (3)
  - Medication error [Unknown]
  - Influenza like illness [Unknown]
  - Arthralgia [Unknown]
